FAERS Safety Report 8763115 (Version 1)
Quarter: 2012Q4

REPORT INFORMATION
  Report Type: 
  Country: US (occurrence: US)
  Receive Date: 20120831
  Receipt Date: 20120831
  Transmission Date: 20130627
  Serious: No
  Sender: FDA-Public Use
  Company Number: US-009507513-1208USA011674

PATIENT

DRUGS (3)
  1. PEGINTRON [Suspect]
     Indication: HEPATITIS C
     Route: 058
  2. REBETOL [Suspect]
     Indication: HEPATITIS C
     Route: 048
  3. VICTRELIS [Suspect]
     Indication: HEPATITIS C
     Route: 048

REACTIONS (3)
  - Depression [Unknown]
  - Insomnia [Unknown]
  - Headache [Unknown]
